FAERS Safety Report 6774035-8 (Version None)
Quarter: 2010Q2

REPORT INFORMATION
  Report Type: 
  Country: None (occurrence: None)
  Receive Date: 20100617
  Receipt Date: 20100615
  Transmission Date: 20101027
  Serious: Yes (Other)
  Sender: FDA-Public Use
  Company Number: US-ASTRAZENECA-2010SE27975

PATIENT
  Age: 18930 Day
  Sex: Female

DRUGS (7)
  1. SEROQUEL [Suspect]
     Dosage: 2 TABLETS AT BEDTIME
     Route: 048
     Dates: start: 20071030
  2. OMEPRAZOLE [Concomitant]
     Dates: start: 20070828
  3. TRAZODONE HYDROCHLORIDE [Concomitant]
     Dates: start: 20070920
  4. SIMVASTATIN [Concomitant]
     Dates: start: 20070926
  5. TRAMADOL HCL [Concomitant]
     Dates: start: 20070928
  6. CLONAZEPAM [Concomitant]
     Dates: start: 20071016
  7. HYDROCHLOROTHIAZIDE [Concomitant]
     Dates: start: 20081201

REACTIONS (14)
  - CHOLELITHIASIS [None]
  - DEPRESSION [None]
  - DIABETIC NEUROPATHY [None]
  - GASTROOESOPHAGEAL REFLUX DISEASE [None]
  - HYPERLIPIDAEMIA [None]
  - HYPERTENSION [None]
  - MIXED HYPERLIPIDAEMIA [None]
  - MUSCLE SPASMS [None]
  - OBESITY [None]
  - OSTEOARTHRITIS [None]
  - RHINITIS ALLERGIC [None]
  - SCHIZOPHRENIA [None]
  - TOBACCO ABUSE [None]
  - TYPE 2 DIABETES MELLITUS [None]
